FAERS Safety Report 15438854 (Version 1)
Quarter: 2018Q4

REPORT INFORMATION
  Report Type: Spontaneous
  Country: US (occurrence: US)
  Receive Date: 20180928
  Receipt Date: 20180928
  Transmission Date: 20190204
  Serious: No
  Sender: FDA-Public Use
  Company Number: US-TEVA-2018-US-957657

PATIENT
  Age: 67 Year
  Sex: Female

DRUGS (1)
  1. ACTAVIS PRIMIDONE [Suspect]
     Active Substance: PRIMIDONE
     Indication: SEIZURE
     Dosage: 2 DOSAGE FORMS DAILY;
     Route: 065
     Dates: start: 201808

REACTIONS (1)
  - Drug ineffective [Unknown]

NARRATIVE: CASE EVENT DATE: 201808
